FAERS Safety Report 15113031 (Version 1)
Quarter: 2018Q3

REPORT INFORMATION
  Report Type: Spontaneous
  Country: ES (occurrence: ES)
  Receive Date: 20180706
  Receipt Date: 20180706
  Transmission Date: 20181010
  Serious: Yes (Hospitalization)
  Sender: FDA-Public Use
  Company Number: ES-ROCHE-2020835

PATIENT
  Age: 77 Year
  Sex: Female
  Weight: 73 kg

DRUGS (2)
  1. RIVOTRIL [Suspect]
     Active Substance: CLONAZEPAM
     Indication: BACK PAIN
     Route: 048
     Dates: start: 20170514, end: 20170515
  2. TRAMADOL HYDROCHLORIDE. [Suspect]
     Active Substance: TRAMADOL HYDROCHLORIDE
     Indication: BACK PAIN
     Route: 048
     Dates: start: 20170514, end: 20170515

REACTIONS (3)
  - Fall [Unknown]
  - Somnolence [Recovered/Resolved]
  - Transcription medication error [Unknown]

NARRATIVE: CASE EVENT DATE: 20170516
